FAERS Safety Report 11948279 (Version 1)
Quarter: 2016Q1

REPORT INFORMATION
  Report Type: Spontaneous
  Country: US (occurrence: US)
  Receive Date: 20160125
  Receipt Date: 20160125
  Transmission Date: 20160526
  Serious: Yes (Other)
  Sender: FDA-Public Use
  Company Number: US-BAXTER-2016BAX003149

PATIENT
  Age: 60 Year
  Sex: Female

DRUGS (7)
  1. DEXAMETHASONE. [Concomitant]
     Active Substance: DEXAMETHASONE
     Indication: HYPERCORTICOIDISM
     Route: 065
  2. DEXAMETHASONE. [Concomitant]
     Active Substance: DEXAMETHASONE
  3. 5-FLUOROURACIL [Concomitant]
     Active Substance: FLUOROURACIL
     Indication: SMALL CELL LUNG CANCER
     Route: 065
  4. AMINOGLUTETHIMIDE [Concomitant]
     Active Substance: AMINOGLUTETHIMIDE
     Route: 065
  5. AMINOGLUTETHIMIDE [Concomitant]
     Active Substance: AMINOGLUTETHIMIDE
     Indication: HYPERCORTICOIDISM
     Route: 065
  6. MECCNU [Suspect]
     Active Substance: SEMUSTINE
     Indication: SMALL CELL LUNG CANCER RECURRENT
     Route: 065
  7. CYTOXAN [Suspect]
     Active Substance: CYCLOPHOSPHAMIDE
     Indication: SMALL CELL LUNG CANCER RECURRENT
     Route: 065

REACTIONS (1)
  - No therapeutic response [Unknown]
